FAERS Safety Report 7050326-0 (Version None)
Quarter: 2010Q4

REPORT INFORMATION
  Report Type: 
  Country: None (occurrence: None)
  Receive Date: 20101018
  Receipt Date: 20101011
  Transmission Date: 20110411
  Serious: Yes (Other)
  Sender: FDA-Public Use
  Company Number: US-BAYER-201035426NA

PATIENT
  Age: 38 Year
  Sex: Male

DRUGS (1)
  1. AVELOX [Suspect]
     Indication: SINUSITIS
     Route: 048
     Dates: start: 20100901, end: 20100901

REACTIONS (5)
  - ANAPHYLACTIC SHOCK [None]
  - OEDEMA PERIPHERAL [None]
  - PRURITUS [None]
  - SYNCOPE [None]
  - URTICARIA [None]
